FAERS Safety Report 5799909-6 (Version None)
Quarter: 2008Q2

REPORT INFORMATION
  Report Type: 
  Country: None (occurrence: None)
  Receive Date: 20080626
  Receipt Date: 20070529
  Transmission Date: 20081010
  Serious: Yes (Hospitalization)
  Sender: FDA-Public Use
  Company Number: 499494

PATIENT
  Age: 43 Year
  Sex: Male

DRUGS (4)
  1. CAPECITABINE (CAPECITABINE) [Suspect]
     Indication: PANCREATIC CARCINOMA METASTATIC
     Dosage: ORAL
     Route: 048
  2. PACLITAXEL [Concomitant]
  3. CYCLOSPORINE [Concomitant]
  4. MORPHINE [Concomitant]

REACTIONS (1)
  - COLITIS [None]
